FAERS Safety Report 19197210 (Version 1)
Quarter: 2021Q2

REPORT INFORMATION
  Report Type: Spontaneous
  Country: MY (occurrence: MY)
  Receive Date: 20210429
  Receipt Date: 20210429
  Transmission Date: 20210717
  Serious: Yes (Death, Other)
  Sender: FDA-Public Use
  Company Number: MY-AMGEN-MYSSP2021064415

PATIENT
  Age: 57 Year
  Sex: Female

DRUGS (2)
  1. SODIUM THIOSULPHATE [Suspect]
     Active Substance: SODIUM THIOSULFATE
     Indication: CALCIPHYLAXIS
     Route: 065
  2. CINACALCET HCL [Suspect]
     Active Substance: CINACALCET HYDROCHLORIDE
     Indication: CALCIPHYLAXIS
     Dosage: UNK
     Route: 065

REACTIONS (3)
  - Off label use [Unknown]
  - Sepsis [Fatal]
  - Calciphylaxis [Unknown]
